FAERS Safety Report 25749493 (Version 1)
Quarter: 2025Q3

REPORT INFORMATION
  Report Type: Spontaneous
  Country: EU (occurrence: EU)
  Receive Date: 20250902
  Receipt Date: 20250902
  Transmission Date: 20251021
  Serious: Yes (Other)
  Sender: RANBAXY
  Company Number: EU-SUN PHARMACEUTICAL INDUSTRIES LTD-2025RR-525189

PATIENT
  Age: 79 Year
  Sex: Male
  Weight: 79 kg

DRUGS (5)
  1. LEVETIRACETAM [Suspect]
     Active Substance: LEVETIRACETAM
     Indication: Epilepsy
     Route: 048
     Dates: start: 20240102, end: 20240427
  2. LEVETIRACETAM [Suspect]
     Active Substance: LEVETIRACETAM
     Route: 048
     Dates: start: 20240428, end: 20250227
  3. LEVETIRACETAM [Suspect]
     Active Substance: LEVETIRACETAM
     Route: 048
     Dates: start: 20250228, end: 20250329
  4. LAMOTRIGINE [Suspect]
     Active Substance: LAMOTRIGINE
     Indication: Epilepsy
     Route: 048
     Dates: start: 20250214, end: 20250507
  5. RINVOQ [Concomitant]
     Active Substance: UPADACITINIB
     Indication: Psoriatic arthropathy
     Dosage: 1-0-0-0
     Route: 065

REACTIONS (13)
  - Drop attacks [Recovering/Resolving]
  - Suicidal ideation [Recovering/Resolving]
  - Aggression [Recovering/Resolving]
  - Tremor [Recovering/Resolving]
  - Feeling drunk [Recovering/Resolving]
  - Memory impairment [Not Recovered/Not Resolved]
  - Bone pain [Recovering/Resolving]
  - Peripheral swelling [Recovering/Resolving]
  - Coordination abnormal [Recovering/Resolving]
  - Dizziness [Recovering/Resolving]
  - Gait disturbance [Unknown]
  - Balance disorder [Not Recovered/Not Resolved]
  - Cognitive disorder [Not Recovered/Not Resolved]
